FAERS Safety Report 12670861 (Version 1)
Quarter: 2016Q3

REPORT INFORMATION
  Report Type: Spontaneous
  Country: AU (occurrence: AU)
  Receive Date: 20160822
  Receipt Date: 20160822
  Transmission Date: 20161109
  Serious: Yes (Death)
  Sender: FDA-Public Use
  Company Number: AU-ACCORD-043326

PATIENT
  Age: 72 Year
  Sex: Male

DRUGS (3)
  1. METHOTREXATE. [Suspect]
     Active Substance: METHOTREXATE
     Indication: PEMPHIGOID
  2. IPILIMUMAB [Suspect]
     Active Substance: IPILIMUMAB
     Indication: PEMPHIGOID
  3. PREDNISONE. [Concomitant]
     Active Substance: PREDNISONE
     Indication: PEMPHIGOID
     Route: 048

REACTIONS (3)
  - Pulmonary toxicity [Fatal]
  - Off label use [Unknown]
  - Pneumonitis [Fatal]
